FAERS Safety Report 4634461-X (Version None)
Quarter: 2005Q2

REPORT INFORMATION
  Report Type: 
  Country: None (occurrence: None)
  Receive Date: 20050412
  Receipt Date: 20050330
  Transmission Date: 20051028
  Serious: Yes (Hospitalization)
  Sender: FDA-Public Use
  Company Number: HQWYE653704APR05

PATIENT
  Age: 84 Year
  Sex: Female

DRUGS (5)
  1. TAZOCIN (PIPERACILLIN/TAZOBACTAM, INJECTION) [Suspect]
     Indication: PNEUMONIA
     Dosage: 3 GRAMS DAILY
     Dates: start: 20050117, end: 20050121
  2. ALENDRONATE SODIUM [Concomitant]
  3. VITAMINS WITH MINERALS (VITAMINS WITH MINERALS) [Concomitant]
  4. POTASSIUM CHLORIDE [Concomitant]
  5. ACETAMINOPHEN [Concomitant]

REACTIONS (5)
  - ASTHENIA [None]
  - DIZZINESS [None]
  - FEBRILE NEUTROPENIA [None]
  - HYPERHIDROSIS [None]
  - PANCYTOPENIA [None]
